FAERS Safety Report 6318636-X (Version None)
Quarter: 2009Q3

REPORT INFORMATION
  Report Type: 
  Country: None (occurrence: None)
  Receive Date: 20090821
  Receipt Date: 20090812
  Transmission Date: 20100115
  Serious: Yes (Other)
  Sender: FDA-Public Use
  Company Number: US-ABBOTT-09P-163-0590814-00

PATIENT
  Weight: 63.56 kg

DRUGS (1)
  1. BIAXIN [Suspect]
     Indication: BRONCHITIS
     Dates: start: 19960101, end: 19960101

REACTIONS (6)
  - CHRONIC LYMPHOCYTIC LEUKAEMIA [None]
  - DIVERTICULITIS [None]
  - HEPATITIS TOXIC [None]
  - JAUNDICE [None]
  - LIVER FUNCTION TEST ABNORMAL [None]
  - SPLENOMEGALY [None]
